FAERS Safety Report 5868675-8 (Version None)
Quarter: 2008Q3

REPORT INFORMATION
  Report Type: 
  Country: None (occurrence: None)
  Receive Date: 20080903
  Receipt Date: 20080826
  Transmission Date: 20090109
  Serious: Yes (Other)
  Sender: FDA-Public Use
  Company Number: PHEH2008US07226

PATIENT

DRUGS (1)
  1. ZOMETA [Suspect]
     Dosage: IV Q 6 MONTHS
     Route: 042

REACTIONS (7)
  - INFECTION [None]
  - JAW DISORDER [None]
  - ORAL DISCOMFORT [None]
  - OSTEONECROSIS [None]
  - PAIN [None]
  - SWELLING [None]
  - TOOTH EXTRACTION [None]
